FAERS Safety Report 23914440 (Version 1)
Quarter: 2024Q2

REPORT INFORMATION
  Report Type: Spontaneous
  Country: CN (occurrence: CN)
  Receive Date: 20240529
  Receipt Date: 20240529
  Transmission Date: 20240716
  Serious: Yes (Death, Other)
  Sender: FDA-Public Use
  Company Number: CN-SUN PHARMACEUTICAL INDUSTRIES LTD-2024R1-447893

PATIENT
  Age: 38 Year
  Sex: Male

DRUGS (6)
  1. TEMOZOLOMIDE [Suspect]
     Active Substance: TEMOZOLOMIDE
     Indication: Glioma
     Dosage: 150-200MG/M2/DAY,THREECYCLESFOR5DAYS
     Route: 048
  2. TEMOZOLOMIDE [Suspect]
     Active Substance: TEMOZOLOMIDE
     Dosage: 100MG/M2/DAY ON A 28-DAYCYCLE,FOR7DAYS
     Route: 048
  3. BEVACIZUMAB [Concomitant]
     Active Substance: BEVACIZUMAB
     Indication: Glioma
     Dosage: 10MG/KG,EVERY2WEEKS
     Route: 065
  4. polyinosinic-polycytidylic acid [Concomitant]
     Indication: Glioma
     Dosage: 1-2MG, QD
  5. polyinosinic-polycytidylic acid [Concomitant]
     Dosage: 50MG/KGPERINJECTION,EVERYOTHERDAY
     Route: 030
  6. GRANULOCYTE-MACROPHAGE COLONY-STIMULATING FACTOR [Concomitant]
     Active Substance: GRANULOCYTE-MACROPHAGE COLONY-STIMULATING FACTOR
     Indication: Glioma
     Dosage: 125MG/M2PER INJECTION,EVERYOTHERDAY
     Route: 058

REACTIONS (3)
  - Hypermutation [Fatal]
  - Condition aggravated [Unknown]
  - Disease progression [Unknown]

NARRATIVE: CASE EVENT DATE: 20181001
